FAERS Safety Report 15413500 (Version 2)
Quarter: 2018Q4

REPORT INFORMATION
  Report Type: Report from Study
  Country: US (occurrence: US)
  Receive Date: 20180921
  Receipt Date: 20181126
  Transmission Date: 20190204
  Serious: Yes (Hospitalization, Other)
  Sender: FDA-Public Use
  Company Number: US-JNJFOC-20180922563

PATIENT
  Sex: Male

DRUGS (22)
  1. NORCO [Concomitant]
     Active Substance: ACETAMINOPHEN\HYDROCODONE BITARTRATE
     Route: 065
  2. LEVOTHYROXINE. [Concomitant]
     Active Substance: LEVOTHYROXINE
  3. DILTIAZEM. [Concomitant]
     Active Substance: DILTIAZEM
  4. TRAZODONE [Concomitant]
     Active Substance: TRAZODONE HYDROCHLORIDE
  5. DONEPEZIL. [Concomitant]
     Active Substance: DONEPEZIL
  6. IMBRUVICA [Suspect]
     Active Substance: IBRUTINIB
     Indication: CHRONIC LYMPHOCYTIC LEUKAEMIA
     Route: 048
     Dates: start: 20180712, end: 2018
  7. BUSPIRONE [Concomitant]
     Active Substance: BUSPIRONE HYDROCHLORIDE
  8. ASPIRIN. [Concomitant]
     Active Substance: ASPIRIN
  9. ALPRAZOLAM. [Concomitant]
     Active Substance: ALPRAZOLAM
  10. BUPROPION. [Concomitant]
     Active Substance: BUPROPION
  11. OMEPRAZOLE. [Concomitant]
     Active Substance: OMEPRAZOLE
  12. MYRBETRIQ [Concomitant]
     Active Substance: MIRABEGRON
  13. IPRATROPIUM [Concomitant]
     Active Substance: IPRATROPIUM
  14. GUAIFENESIN. [Concomitant]
     Active Substance: GUAIFENESIN
  15. ALBUTEROL SULFATE. [Concomitant]
     Active Substance: ALBUTEROL SULFATE
  16. LUTEIN [Concomitant]
     Active Substance: LUTEIN
  17. PREDNISONE. [Concomitant]
     Active Substance: PREDNISONE
  18. CALCIUM CARBONATE. [Concomitant]
     Active Substance: CALCIUM CARBONATE
  19. LINUM USITATISSIMUM SEED OIL [Concomitant]
  20. MULTIVITAMINS [Concomitant]
     Active Substance: VITAMINS
  21. FLUCONAZOLE. [Concomitant]
     Active Substance: FLUCONAZOLE
  22. CARBIDOPA W/LEVODOPA [Concomitant]
     Active Substance: CARBIDOPA\LEVODOPA

REACTIONS (2)
  - Hospitalisation [Unknown]
  - Platelet count decreased [Unknown]
